FAERS Safety Report 15777769 (Version 7)
Quarter: 2021Q1

REPORT INFORMATION
  Report Type: Spontaneous
  Country: DE (occurrence: DE)
  Receive Date: 20181231
  Receipt Date: 20210304
  Transmission Date: 20210419
  Serious: Yes (Other)
  Sender: FDA-Public Use
  Company Number: PHHY2018DE166369

PATIENT
  Age: 68 Year
  Sex: Male

DRUGS (28)
  1. DEXAMETHASONE. [Suspect]
     Active Substance: DEXAMETHASONE
     Indication: POST HERPETIC NEURALGIA
     Dosage: UNK
     Route: 065
  2. AMITRIPTYLINE HYDROCHLORIDE. [Suspect]
     Active Substance: AMITRIPTYLINE HYDROCHLORIDE
     Indication: TRIGEMINAL NEURALGIA
     Dosage: 20 MG, UNK
     Route: 065
  3. TAPENTADOL HYDROCHLORIDE [Suspect]
     Active Substance: TAPENTADOL HYDROCHLORIDE
     Indication: POST HERPETIC NEURALGIA
     Dosage: 150?150?200 MG; LATER REDUCED TO 100?100?200 MG, TID
     Route: 065
  4. TAPENTADOL HYDROCHLORIDE [Suspect]
     Active Substance: TAPENTADOL HYDROCHLORIDE
     Dosage: 100?100?200 MG (AFTER 8 MONTHS)
     Route: 065
  5. CAPSAICIN. [Suspect]
     Active Substance: CAPSAICIN
     Indication: POST HERPETIC NEURALGIA
     Dosage: DAILY DOSE 8%
     Route: 061
  6. GABAPENTIN. [Suspect]
     Active Substance: GABAPENTIN
     Dosage: 2400 MG, QD
     Route: 065
  7. ACICLOVIR [Suspect]
     Active Substance: ACYCLOVIR
     Indication: HERPES ZOSTER
  8. AMITRIPTYLINE HYDROCHLORIDE. [Suspect]
     Active Substance: AMITRIPTYLINE HYDROCHLORIDE
     Dosage: 25 MG, UNK
     Route: 065
  9. TAPENTADOL HYDROCHLORIDE [Suspect]
     Active Substance: TAPENTADOL HYDROCHLORIDE
     Dosage: 100?100?200 MG (AFTER 8 MONTHS), TID
     Route: 065
  10. DEXKETOPROFEN [Concomitant]
     Active Substance: DEXKETOPROFEN
     Indication: POST HERPETIC NEURALGIA
     Dosage: UKN,FOR 60 MINUTES
     Route: 050
  11. OXCARBAZEPINE. [Suspect]
     Active Substance: OXCARBAZEPINE
     Indication: TRIGEMINAL NEURALGIA
     Dosage: 600 MG, 4X150 LATER REDUCED TO 2X150 MG
     Route: 065
  12. TAPENTADOL HYDROCHLORIDE [Suspect]
     Active Substance: TAPENTADOL HYDROCHLORIDE
     Indication: TRIGEMINAL NEURALGIA
     Dosage: MG/D (MG PER DAY)
     Route: 065
  13. PREGABALIN. [Suspect]
     Active Substance: PREGABALIN
     Indication: TRIGEMINAL NEURALGIA
     Dosage: UNK
     Route: 065
  14. HYDROMORPHONE [Suspect]
     Active Substance: HYDROMORPHONE
     Indication: TRIGEMINAL NEURALGIA
     Dosage: 8 MG, UNK (4?0?4 MG)
     Route: 065
  15. PREGABALIN. [Suspect]
     Active Substance: PREGABALIN
     Indication: OFF LABEL USE
  16. MUCOSOLVAN [Suspect]
     Active Substance: AMBROXOL HYDROCHLORIDE
     Indication: PRODUCT USED FOR UNKNOWN INDICATION
     Dosage: 20% OINTMENT
     Route: 065
  17. GABAPENTIN. [Suspect]
     Active Substance: GABAPENTIN
     Indication: TRIGEMINAL NEURALGIA
     Dosage: 1800 MG, QD 600?300?300 MG,THE MAN TOOK INCREASED DOSE UPTO 2400 MG/DAY
     Route: 065
  18. GABAPENTIN. [Suspect]
     Active Substance: GABAPENTIN
     Dosage: (WEEK 8)
     Route: 065
  19. ACICLOVIR [Suspect]
     Active Substance: ACYCLOVIR
     Indication: TRIGEMINAL NEURALGIA
     Dosage: UNK
     Route: 065
  20. PREGABALIN. [Suspect]
     Active Substance: PREGABALIN
     Indication: POST HERPETIC NEURALGIA
  21. OXCARBAZEPINE. [Suspect]
     Active Substance: OXCARBAZEPINE
     Indication: POST HERPETIC NEURALGIA
     Dosage: 300 MG, QD (2X150MG)
     Route: 065
  22. GABAPENTIN. [Suspect]
     Active Substance: GABAPENTIN
     Dosage: 600?300?300 MG(WEEK 17)
     Route: 065
  23. OXCARBAZEPINE. [Suspect]
     Active Substance: OXCARBAZEPINE
     Dosage: WEEK 8
     Route: 065
  24. OXCARBAZEPINE. [Suspect]
     Active Substance: OXCARBAZEPINE
     Dosage: 300
     Route: 065
  25. GABAPENTIN. [Suspect]
     Active Substance: GABAPENTIN
     Dosage: 300?300?300
     Route: 065
  26. HYDROMORPHONE [Suspect]
     Active Substance: HYDROMORPHONE
     Dosage: 4 MG
     Route: 065
  27. LIDOCAINE HYDROCHLORIDE. [Suspect]
     Active Substance: LIDOCAINE HYDROCHLORIDE
     Indication: TRIGEMINAL NEURALGIA
     Dosage: UNK UNK, QHS
     Route: 061
  28. AMITRIPTYLINE HYDROCHLORIDE. [Suspect]
     Active Substance: AMITRIPTYLINE HYDROCHLORIDE
     Dosage: 10 DROPS (WEEK 8)
     Route: 065

REACTIONS (28)
  - Hyperaesthesia [Unknown]
  - Post herpetic neuralgia [Unknown]
  - Drug ineffective [Unknown]
  - Fall [Unknown]
  - Intentional product use issue [Unknown]
  - Insomnia [Unknown]
  - Liver function test increased [Unknown]
  - Hypoaesthesia [Unknown]
  - Osteoarthritis [Unknown]
  - Drug eruption [Unknown]
  - Glaucoma [Unknown]
  - Fatigue [Unknown]
  - Quality of life decreased [Unknown]
  - Confusional state [Unknown]
  - Blood creatinine increased [Unknown]
  - Application site erythema [Unknown]
  - Burning sensation [Unknown]
  - Application site pain [Unknown]
  - Sleep apnoea syndrome [Unknown]
  - Atrial fibrillation [Unknown]
  - Depression [Unknown]
  - Nasopharyngitis [Unknown]
  - Constipation [Unknown]
  - Benign prostatic hyperplasia [Unknown]
  - Erythema [Unknown]
  - Sleep deficit [Recovered/Resolved]
  - Therapeutic product effect incomplete [Unknown]
  - Off label use [Unknown]
